FAERS Safety Report 6789469-5 (Version None)
Quarter: 2010Q2

REPORT INFORMATION
  Report Type: 
  Country: None (occurrence: None)
  Receive Date: 20100624
  Receipt Date: 20100611
  Transmission Date: 20101027
  Serious: Yes (Hospitalization)
  Sender: FDA-Public Use
  Company Number: US-JNJCH-2010011290

PATIENT
  Age: 6 Year
  Sex: Male
  Weight: 27.2 kg

DRUGS (8)
  1. CHILDREN'S BENADRYL ALLERGY [Suspect]
     Indication: HYPERSENSITIVITY
     Dosage: TEXT:ONE TSP. 2XDAY
     Route: 048
     Dates: start: 20100421, end: 20100421
  2. CHILDREN'S BENADRYL ALLERGY [Suspect]
     Indication: HYPERSENSITIVITY
     Dosage: TEXT:ONE TSP. 1XDAY
     Route: 048
     Dates: start: 20100422, end: 20100423
  3. ZYRTEC [Suspect]
     Indication: DRUG USE FOR UNKNOWN INDICATION
     Dosage: TEXT:UNSPECIFIED
     Route: 048
  4. TYLENOL [Suspect]
     Indication: DRUG USE FOR UNKNOWN INDICATION
     Dosage: TEXT:UNSPECIFIED
     Route: 048
  5. MOTRIN [Suspect]
     Indication: DRUG USE FOR UNKNOWN INDICATION
     Dosage: TEXT:UNSPECIFIED
     Route: 048
  6. FLINTSTONES MULTIPLE VITAMINS [Concomitant]
     Indication: VITAMIN SUPPLEMENTATION
     Dosage: TEXT:1 X DAY
     Route: 048
  7. RANITIDINE [Concomitant]
     Indication: ABDOMINAL PAIN UPPER
     Dosage: TEXT:ONE TEASPOON TWICE A DAY
     Route: 048
  8. AMOXICILLIN [Concomitant]
     Indication: OROPHARYNGEAL PAIN
     Dosage: TEXT:UNSPECIFIED
     Route: 065

REACTIONS (5)
  - ABDOMINAL PAIN UPPER [None]
  - ABNORMAL BEHAVIOUR [None]
  - PRESYNCOPE [None]
  - PRODUCT QUALITY ISSUE [None]
  - RESPIRATION ABNORMAL [None]
